FAERS Safety Report 4365974-6 (Version None)
Quarter: 2004Q2

REPORT INFORMATION
  Report Type: 
  Country: None (occurrence: None)
  Receive Date: 20040526
  Receipt Date: 20040428
  Transmission Date: 20050107
  Serious: Yes (Life-Threatening, Hospitalization)
  Sender: FDA-Public Use
  Company Number: 200411390EU

PATIENT
  Age: 66 Year
  Sex: Female

DRUGS (6)
  1. TAXOTERE [Suspect]
     Indication: BREAST CANCER
     Route: 042
     Dates: start: 20040227, end: 20040409
  2. CYCLOPHOSPHAMIDE [Concomitant]
  3. DESAMETHASONE [Concomitant]
  4. GRANISETRON [Concomitant]
  5. METOCLOPRAMIDE [Concomitant]
  6. RABEPRAZOLE SODIUM [Concomitant]

REACTIONS (1)
  - RESPIRATORY FAILURE [None]
